FAERS Safety Report 6759857-1 (Version None)
Quarter: 2010Q2

REPORT INFORMATION
  Report Type: 
  Country: None (occurrence: None)
  Receive Date: 20100608
  Receipt Date: 20100528
  Transmission Date: 20101027
  Serious: Yes (Other)
  Sender: FDA-Public Use
  Company Number: PHHY2010US24134

PATIENT
  Sex: Male
  Weight: 163 kg

DRUGS (11)
  1. TRILEPTAL [Suspect]
     Indication: BIPOLAR DISORDER
     Dosage: 300 MG, UNK
     Route: 048
     Dates: end: 20090801
  2. TRILEPTAL [Suspect]
     Dosage: 600 MG, QHS
     Route: 048
     Dates: start: 20001101, end: 20090801
  3. OXCARBAZEPINE [Suspect]
  4. TRAZODONE HCL [Concomitant]
     Indication: INSOMNIA
     Dosage: 200 MG, QHS
     Route: 048
     Dates: start: 19990730
  5. VALIUM [Concomitant]
  6. TRIAMCINOLONE [Concomitant]
  7. MIACALCIN [Concomitant]
     Dosage: 5 MG, UNK
  8. LORTAB [Concomitant]
  9. PRILOSEC [Concomitant]
  10. NEURONTIN [Concomitant]
     Dosage: UNK
  11. GABAPENTIN [Concomitant]
     Indication: NEURALGIA
     Dosage: 300 MG, BID
     Route: 048
     Dates: start: 19981116, end: 20090515

REACTIONS (6)
  - DISCOMFORT [None]
  - MOOD SWINGS [None]
  - MUSCLE SPASMS [None]
  - NERVE INJURY [None]
  - PAIN [None]
  - PARAESTHESIA [None]
